FAERS Safety Report 9670886 (Version 2)
Quarter: 2013Q4

REPORT INFORMATION
  Report Type: Report from Study
  Country: DE (occurrence: DE)
  Receive Date: 20131106
  Receipt Date: 20131108
  Transmission Date: 20140711
  Serious: Yes (Hospitalization)
  Sender: FDA-Public Use
  Company Number: PHHY2013DE124983

PATIENT
  Sex: Female

DRUGS (4)
  1. FTY 720 [Suspect]
     Indication: MULTIPLE SCLEROSIS
     Dosage: 0.5 MG, QD
     Route: 048
     Dates: start: 20110418
  2. CANDESARTAN [Concomitant]
     Indication: HYPERTENSION
     Dosage: 16 MG, QD
     Route: 048
  3. AMLODIPINE [Concomitant]
     Dosage: 5 MG, QD
     Route: 048
  4. INEGY [Concomitant]
     Indication: HYPERCHOLESTEROLAEMIA
     Dosage: EZETIMIBE: 10 MG, SIMVASTATIN: 10 MG
     Route: 048

REACTIONS (1)
  - Menorrhagia [Recovered/Resolved]
